FAERS Safety Report 9536243 (Version 3)
Quarter: 2013Q3

REPORT INFORMATION
  Report Type: Spontaneous
  Country: DE (occurrence: DE)
  Receive Date: 20130919
  Receipt Date: 20130930
  Transmission Date: 20140515
  Serious: Yes (Death, Hospitalization, Other)
  Sender: FDA-Public Use
  Company Number: DE-JNJFOC-20130715075

PATIENT
  Age: 68 Year
  Sex: Male
  Weight: 75 kg

DRUGS (7)
  1. XARELTO [Suspect]
     Indication: PULMONARY EMBOLISM
     Dosage: 20 MG OM
     Route: 048
     Dates: start: 20130712
  2. XARELTO [Suspect]
     Indication: VENOUS THROMBOSIS
     Dosage: 20 MG OM
     Route: 048
     Dates: start: 20130712
  3. XARELTO [Suspect]
     Indication: VENOUS THROMBOSIS LIMB
     Dosage: 20 MG OM
     Route: 048
     Dates: start: 20130712
  4. VIMOVO [Interacting]
     Indication: PRODUCT USED FOR UNKNOWN INDICATION
     Route: 065
  5. MARCUMAR [Interacting]
     Indication: PRODUCT USED FOR UNKNOWN INDICATION
     Route: 065
     Dates: start: 20130712
  6. TORASEMIDE [Concomitant]
     Route: 065
  7. PRAVASTATIN [Concomitant]
     Route: 065

REACTIONS (5)
  - Traumatic haemorrhage [Fatal]
  - Multi-organ failure [Fatal]
  - Shock haemorrhagic [Fatal]
  - Traumatic haematoma [Unknown]
  - Drug interaction [Unknown]
